FAERS Safety Report 14509174 (Version 1)
Quarter: 2018Q1

REPORT INFORMATION
  Report Type: Spontaneous
  Country: US (occurrence: US)
  Receive Date: 20180207
  Receipt Date: 20180207
  Transmission Date: 20180509
  Serious: Yes (Death)
  Sender: FDA-Public Use
  Company Number: None

PATIENT
  Age: 81 Year
  Sex: Male
  Weight: 57 kg

DRUGS (1)
  1. DALTEPARIN [Suspect]
     Active Substance: DALTEPARIN
     Indication: VENA CAVA THROMBOSIS
     Route: 058
     Dates: start: 20170707, end: 20180104

REACTIONS (2)
  - Neoplasm malignant [None]
  - Disease progression [None]

NARRATIVE: CASE EVENT DATE: 20180128
